FAERS Safety Report 16339465 (Version 2)
Quarter: 2020Q1

REPORT INFORMATION
  Report Type: Spontaneous
  Country: US (occurrence: US)
  Receive Date: 20190521
  Receipt Date: 20200312
  Transmission Date: 20200409
  Serious: No
  Sender: FDA-Public Use
  Company Number: US-SA-2019SA136679

PATIENT
  Sex: Male
  Weight: 70.75 kg

DRUGS (7)
  1. PROAIR HFA [Concomitant]
     Active Substance: ALBUTEROL SULFATE
  2. TIMOLOL MALEATE. [Concomitant]
     Active Substance: TIMOLOL MALEATE
  3. SIMVASTATIN. [Concomitant]
     Active Substance: SIMVASTATIN
  4. DUPIXENT [Suspect]
     Active Substance: DUPILUMAB
     Indication: DERMATITIS ATOPIC
     Dosage: 300 MG, QOW
     Route: 058
     Dates: start: 20190404
  5. DUPIXENT [Suspect]
     Active Substance: DUPILUMAB
     Indication: ILL-DEFINED DISORDER
  6. PIMECROLIMUS. [Concomitant]
     Active Substance: PIMECROLIMUS
  7. ASPIRIN EC [Concomitant]
     Active Substance: ASPIRIN

REACTIONS (7)
  - Intentional product use issue [Unknown]
  - Ocular hyperaemia [Recovered/Resolved]
  - Eye inflammation [Unknown]
  - Eye allergy [Recovering/Resolving]
  - Lacrimation increased [Recovering/Resolving]
  - Condition aggravated [Recovering/Resolving]
  - Eye pruritus [Recovered/Resolved]
